FAERS Safety Report 20474828 (Version 3)
Quarter: 2022Q2

REPORT INFORMATION
  Report Type: Spontaneous
  Country: US (occurrence: US)
  Receive Date: 20220215
  Receipt Date: 20220428
  Transmission Date: 20220721
  Serious: No
  Sender: FDA-Public Use
  Company Number: US-GLAXOSMITHKLINE-US2022AMR022519

PATIENT
  Sex: Female

DRUGS (1)
  1. ALBUTEROL SULFATE [Suspect]
     Active Substance: ALBUTEROL SULFATE
     Indication: Product used for unknown indication
     Dosage: UNK, 90 MCG

REACTIONS (5)
  - Off label use [Unknown]
  - Wrong technique in product usage process [Unknown]
  - Product storage error [Unknown]
  - Product dose omission issue [Unknown]
  - Product complaint [Unknown]
